FAERS Safety Report 8508679 (Version 5)
Quarter: 2013Q4

REPORT INFORMATION
  Report Type: Spontaneous
  Country: US (occurrence: US)
  Receive Date: 20120412
  Receipt Date: 20131219
  Transmission Date: 20140711
  Serious: Yes (Hospitalization)
  Sender: FDA-Public Use
  Company Number: US-ASTRAZENECA-2011SE28481

PATIENT
  Age: 58 Year
  Sex: Male
  Weight: 115.2 kg

DRUGS (15)
  1. NEXIUM [Suspect]
     Indication: GASTROOESOPHAGEAL REFLUX DISEASE
     Route: 048
  2. NEXIUM [Suspect]
     Indication: GASTROOESOPHAGEAL REFLUX DISEASE
     Route: 048
  3. NEXIUM [Suspect]
     Indication: GASTROOESOPHAGEAL REFLUX DISEASE
     Route: 048
  4. NEXIUM IV [Suspect]
     Route: 042
  5. PRILOSEC [Suspect]
     Route: 048
  6. TAMULOSIN HCL [Concomitant]
     Indication: URINE FLOW DECREASED
  7. NADALOL [Concomitant]
     Indication: HYPERTENSION
     Dates: start: 2005
  8. TRAMADOL HCL [Concomitant]
     Indication: ARTHRALGIA
  9. TRAMADOL HCL [Concomitant]
     Indication: MIGRAINE
  10. LORTAB [Concomitant]
     Indication: ARTHRALGIA
  11. LORTAB [Concomitant]
     Indication: MIGRAINE
  12. CEPHALEXIN [Concomitant]
     Indication: ACNE
     Dates: start: 2010
  13. LACTULOSE [Concomitant]
     Indication: CONSTIPATION
     Dosage: 10MG TAKE 30ML BID AS NEEDED
  14. METAMUCIL [Concomitant]
     Dosage: DAILY
  15. STOOL SOFTENER [Concomitant]
     Dosage: DAILY

REACTIONS (18)
  - Cholelithiasis [Unknown]
  - Dyspepsia [Unknown]
  - Gastrooesophageal reflux disease [Unknown]
  - Blood pressure increased [Unknown]
  - Gastrooesophageal reflux disease [Unknown]
  - Gastric disorder [Unknown]
  - Adverse event [Unknown]
  - Migraine [Unknown]
  - Sleep apnoea syndrome [Unknown]
  - Pain [Unknown]
  - Acne [Unknown]
  - Constipation [Unknown]
  - Malaise [Unknown]
  - Dysgeusia [Unknown]
  - Malaise [Unknown]
  - Drug dose omission [Not Recovered/Not Resolved]
  - Drug ineffective [Unknown]
  - Off label use [Unknown]
